FAERS Safety Report 4562525-8 (Version None)
Quarter: 2005Q1

REPORT INFORMATION
  Report Type: 
  Country: None (occurrence: None)
  Receive Date: 20050127
  Receipt Date: 20050119
  Transmission Date: 20050727
  Serious: Yes (Life-Threatening, Hospitalization)
  Sender: FDA-Public Use
  Company Number: US-BOEHRINGER INGELHEIM PHARMMACEUTICALS, INC.-2005-BP-00817BP

PATIENT
  Age: 93 Year
  Sex: Female
  Weight: 40.8 kg

DRUGS (6)
  1. MICARDIS [Suspect]
     Indication: HYPERTENSION
     Route: 048
     Dates: start: 20020101, end: 20050101
  2. LASIX [Concomitant]
  3. LANOXIN [Concomitant]
     Indication: ATRIAL FIBRILLATION
  4. PLENDIL [Concomitant]
  5. COUMADIN [Concomitant]
     Indication: ATRIAL FIBRILLATION
  6. IMDUR [Concomitant]

REACTIONS (5)
  - DRUG INEFFECTIVE [None]
  - FLUID RETENTION [None]
  - MALAISE [None]
  - PNEUMONIA [None]
  - WEIGHT INCREASED [None]
